FAERS Safety Report 11793993 (Version 6)
Quarter: 2016Q4

REPORT INFORMATION
  Report Type: Report from Study
  Country: JO (occurrence: JO)
  Receive Date: 20151202
  Receipt Date: 20161012
  Transmission Date: 20170206
  Serious: Yes (Hospitalization, Other)
  Sender: FDA-Public Use
  Company Number: PHHY2015JO125858

PATIENT
  Age: 21 Year
  Sex: Female
  Weight: 52.7 kg

DRUGS (5)
  1. DABRAFENIB [Suspect]
     Active Substance: DABRAFENIB
     Indication: METASTATIC MALIGNANT MELANOMA
     Dosage: 150 MG, BID
     Route: 065
     Dates: start: 20150808
  2. DABRAFENIB [Suspect]
     Active Substance: DABRAFENIB
     Indication: BRAIN NEOPLASM
     Dosage: 150 MG, BID
     Route: 065
     Dates: start: 20150104, end: 20150727
  3. TRAMETINIB [Suspect]
     Active Substance: TRAMETINIB
     Indication: BRAIN NEOPLASM
     Dosage: 2 MG, UNK
     Route: 065
  4. TRAMETINIB [Suspect]
     Active Substance: TRAMETINIB
     Indication: METASTATIC MALIGNANT MELANOMA
  5. DABRAFENIB [Suspect]
     Active Substance: DABRAFENIB
     Dosage: 75 MG, UNK
     Route: 065

REACTIONS (21)
  - Skin lesion [Recovering/Resolving]
  - Fatigue [Recovering/Resolving]
  - Postictal paralysis [Unknown]
  - Hepatic pain [Unknown]
  - Blood albumin decreased [Recovering/Resolving]
  - Facial paralysis [Recovering/Resolving]
  - Liver injury [Unknown]
  - Skin hypertrophy [Recovering/Resolving]
  - Asthenia [Recovered/Resolved]
  - Oedema peripheral [Unknown]
  - International normalised ratio increased [Recovering/Resolving]
  - Decreased appetite [Unknown]
  - Hemiplegia [Recovering/Resolving]
  - Osteoporosis [Unknown]
  - Blood bilirubin increased [Recovering/Resolving]
  - Weight increased [Recovering/Resolving]
  - Back pain [Recovering/Resolving]
  - Blood calcium decreased [Recovered/Resolved]
  - Hemiparesis [Recovering/Resolving]
  - Hemiparesis [Recovered/Resolved]
  - Malignant neoplasm progression [Recovering/Resolving]

NARRATIVE: CASE EVENT DATE: 20150420
